FAERS Safety Report 10065346 (Version 7)
Quarter: 2015Q3

REPORT INFORMATION
  Report Type: Spontaneous
  Country: US (occurrence: US)
  Receive Date: 20140408
  Receipt Date: 20150702
  Transmission Date: 20151125
  Serious: Yes (Life-Threatening, Hospitalization, Other)
  Sender: FDA-Public Use
  Company Number: US-009507513-1404USA004118

PATIENT
  Sex: Male
  Weight: 108.84 kg

DRUGS (3)
  1. JANUVIA [Suspect]
     Active Substance: SITAGLIPTIN PHOSPHATE
     Indication: TYPE 2 DIABETES MELLITUS
     Dosage: 50 MG, QD
     Route: 048
     Dates: start: 20090904, end: 20100509
  2. JANUVIA [Suspect]
     Active Substance: SITAGLIPTIN PHOSPHATE
     Dosage: 100 MG, QD
     Route: 048
     Dates: start: 20100410, end: 20120321
  3. JANUMET [Suspect]
     Active Substance: METFORMIN HYDROCHLORIDE\SITAGLIPTIN PHOSPHATE
     Indication: TYPE 2 DIABETES MELLITUS
     Dosage: 50 MG/1000 MG, BID
     Route: 048
     Dates: start: 20071020, end: 20080126

REACTIONS (43)
  - Pancreaticoduodenectomy [Unknown]
  - Cholecystectomy [Unknown]
  - Transurethral prostatectomy [Unknown]
  - Spinal osteoarthritis [Unknown]
  - Lung hyperinflation [Unknown]
  - Lymphadenopathy [Unknown]
  - Bladder neoplasm surgery [Unknown]
  - Biopsy kidney [Unknown]
  - Abdominal discomfort [Unknown]
  - Pancreatitis chronic [Unknown]
  - Transurethral bladder resection [Unknown]
  - Atelectasis [Unknown]
  - Pleural calcification [Unknown]
  - Adenocarcinoma pancreas [Unknown]
  - Stent placement [Unknown]
  - Thyroid cyst [Unknown]
  - Aortic arteriosclerosis [Unknown]
  - Thyroid neoplasm [Unknown]
  - Biliary sphincterotomy [Unknown]
  - QRS axis abnormal [Unknown]
  - Atelectasis [Unknown]
  - Biopsy thyroid gland [Unknown]
  - Haemolytic uraemic syndrome [Unknown]
  - Barrett^s oesophagus [Unknown]
  - Kidney infection [Unknown]
  - Helicobacter gastritis [Not Recovered/Not Resolved]
  - Prostatomegaly [Unknown]
  - Bladder transitional cell carcinoma stage I [Unknown]
  - Varices oesophageal [Unknown]
  - Electrocardiogram T wave inversion [Unknown]
  - Inguinal hernia [Unknown]
  - Dyspepsia [Unknown]
  - Renal failure [Unknown]
  - Acute kidney injury [Unknown]
  - Hiatus hernia [Unknown]
  - Dysphagia [Unknown]
  - Liver disorder [Unknown]
  - Umbilical hernia [Unknown]
  - Diverticulum intestinal [Unknown]
  - Pulmonary fibrosis [Unknown]
  - Hypomagnesaemia [Unknown]
  - Hypertension [Unknown]
  - Gastric disorder [Unknown]

NARRATIVE: CASE EVENT DATE: 2007
